FAERS Safety Report 5573293-5 (Version None)
Quarter: 2007Q4

REPORT INFORMATION
  Report Type: 
  Country: None (occurrence: None)
  Receive Date: 20071224
  Receipt Date: 20071221
  Transmission Date: 20080405
  Serious: Yes (Death, Hospitalization)
  Sender: FDA-Public Use
  Company Number: PHHO2007CZ18208

PATIENT
  Age: 67 Year
  Sex: Female
  Weight: 80 kg

DRUGS (4)
  1. AMN107 [Suspect]
     Indication: CHRONIC MYELOID LEUKAEMIA
     Dosage: NO TREATMENT
  2. AMN107 [Suspect]
     Dosage: 400 DAILY
     Route: 048
     Dates: start: 20071106, end: 20071127
  3. AMN107 [Suspect]
     Dosage: 800MG DAILY
     Route: 048
     Dates: start: 20070911, end: 20071010
  4. AMN107 [Suspect]
     Dosage: 400MG DAILY
     Route: 048
     Dates: start: 20071011, end: 20071011

REACTIONS (9)
  - ANAEMIA [None]
  - BLOOD CREATININE INCREASED [None]
  - FLUID INTAKE REDUCED [None]
  - HAEMATOTOXICITY [None]
  - NEUTROPENIA [None]
  - PNEUMONIA [None]
  - SEPSIS [None]
  - STOMATITIS [None]
  - THROMBOCYTOPENIA [None]
